FAERS Safety Report 23182015 (Version 1)
Quarter: 2023Q4

REPORT INFORMATION
  Report Type: Spontaneous
  Country: DE (occurrence: DE)
  Receive Date: 20231114
  Receipt Date: 20231114
  Transmission Date: 20240110
  Serious: Yes (Other)
  Sender: FDA-Public Use
  Company Number: DE-002147023-NVSC2023DE239496

PATIENT
  Age: 63 Year
  Sex: Male

DRUGS (1)
  1. LUCENTIS [Suspect]
     Active Substance: RANIBIZUMAB
     Indication: Retinal vein occlusion
     Dosage: UNK (INTRAVITREAL USE SURGICAL DRUG ADMINISTRATION (IVOM), MORE THAN TWO YEARS ABOUT EVERY 6 TO 8 WE
     Route: 065
     Dates: start: 202102

REACTIONS (2)
  - Coronary artery disease [Unknown]
  - Coronary artery occlusion [Unknown]

NARRATIVE: CASE EVENT DATE: 20230101
